FAERS Safety Report 14341937 (Version 2)
Quarter: 2018Q1

REPORT INFORMATION
  Report Type: Spontaneous
  Country: BR (occurrence: BR)
  Receive Date: 20180102
  Receipt Date: 20180130
  Transmission Date: 20180509
  Serious: Yes (Other)
  Sender: FDA-Public Use
  Company Number: PHHY2017BR196321

PATIENT
  Sex: Female
  Weight: 28 kg

DRUGS (6)
  1. TEGRETOL [Suspect]
     Active Substance: CARBAMAZEPINE
     Indication: SEIZURE
  2. TEGRETOL [Suspect]
     Active Substance: CARBAMAZEPINE
     Indication: SEIZURE
  3. TEGRETOL [Suspect]
     Active Substance: CARBAMAZEPINE
     Indication: MICROCEPHALY
     Dosage: UNK
     Route: 065
     Dates: start: 1990
  4. TEGRETOL [Suspect]
     Active Substance: CARBAMAZEPINE
     Indication: MICROCEPHALY
     Dosage: 2 DF, QD
     Route: 048
  5. CARBAMAZEPINE. [Suspect]
     Active Substance: CARBAMAZEPINE
     Indication: MICROCEPHALY
     Route: 065
  6. CARBAMAZEPINE. [Suspect]
     Active Substance: CARBAMAZEPINE
     Indication: SEIZURE

REACTIONS (2)
  - Loss of consciousness [Recovered/Resolved]
  - Drug dispensing error [Recovered/Resolved]
